FAERS Safety Report 10186752 (Version 1)
Quarter: 2014Q2

REPORT INFORMATION
  Report Type: Spontaneous
  Country: CH (occurrence: CH)
  Receive Date: 20140521
  Receipt Date: 20140521
  Transmission Date: 20141212
  Serious: Yes (Other)
  Sender: FDA-Public Use
  Company Number: PHHY2014CH058629

PATIENT
  Age: 69 Year
  Sex: Female

DRUGS (2)
  1. LETROZOLE [Suspect]
  2. PRAVASTATIN [Concomitant]

REACTIONS (6)
  - Hypersensitivity vasculitis [Recovering/Resolving]
  - Drug eruption [Recovering/Resolving]
  - Skin plaque [Recovering/Resolving]
  - Petechiae [Recovering/Resolving]
  - Skin ulcer [Recovering/Resolving]
  - Extravasation [Unknown]
